FAERS Safety Report 16610467 (Version 1)
Quarter: 2019Q3

REPORT INFORMATION
  Report Type: Spontaneous
  Country: GB (occurrence: GB)
  Receive Date: 20190722
  Receipt Date: 20190722
  Transmission Date: 20191004
  Serious: Yes (Other)
  Sender: FDA-Public Use
  Company Number: GB-BAYER-2019-131774

PATIENT
  Sex: Female

DRUGS (2)
  1. MIRENA [Suspect]
     Active Substance: LEVONORGESTREL
     Dosage: 20 MCG/24HR, CONT
     Route: 015
  2. MIRENA [Suspect]
     Active Substance: LEVONORGESTREL

REACTIONS (7)
  - Infertility female [None]
  - Genital haemorrhage [Recovered/Resolved]
  - Palpitations [None]
  - Osteoporosis [None]
  - Device dislocation [None]
  - Sarcoidosis [None]
  - Artificial menopause [None]
